FAERS Safety Report 11822968 (Version 2)
Quarter: 2015Q4

REPORT INFORMATION
  Report Type: Spontaneous
  Country: TR (occurrence: TR)
  Receive Date: 20151210
  Receipt Date: 20151217
  Transmission Date: 20160305
  Serious: Yes (Disabling, Other)
  Sender: FDA-Public Use
  Company Number: PHHY2015TR161494

PATIENT
  Age: 53 Year
  Sex: Female
  Weight: 69 kg

DRUGS (7)
  1. ZOLEDRONIC ACID [Suspect]
     Active Substance: ZOLEDRONIC ACID
     Indication: BRAF GENE MUTATION
     Dosage: UNK
     Route: 042
     Dates: start: 20151117
  2. CONTRAMAL [Concomitant]
     Active Substance: TRAMADOL HYDROCHLORIDE
     Indication: PAIN
     Dosage: 200 MG, QD
     Route: 048
  3. DROPIA [Concomitant]
     Indication: TYPE 2 DIABETES MELLITUS
     Dosage: 15 MG, QD
     Route: 048
  4. ARAVA [Concomitant]
     Active Substance: LEFLUNOMIDE
     Indication: RHEUMATOID ARTHRITIS
     Dosage: 30 MG, QD
     Route: 048
  5. EMEDUR [Concomitant]
     Indication: NAUSEA
     Dosage: 600 MG, PRN
     Route: 048
     Dates: start: 20151117
  6. TAFINLAR [Suspect]
     Active Substance: DABRAFENIB MESYLATE
     Indication: PRODUCT USED FOR UNKNOWN INDICATION
     Dosage: 300 MG, QD
     Route: 048
     Dates: start: 20151118
  7. METPAMID [Concomitant]
     Indication: NAUSEA
     Dosage: 3 DF, PRN
     Route: 048
     Dates: start: 20151117

REACTIONS (3)
  - Optic disc haemorrhage [Not Recovered/Not Resolved]
  - Papilloedema [Not Recovered/Not Resolved]
  - Retinal vein occlusion [Unknown]

NARRATIVE: CASE EVENT DATE: 20151130
